FAERS Safety Report 5690627-1 (Version None)
Quarter: 2008Q1

REPORT INFORMATION
  Report Type: 
  Country: None (occurrence: None)
  Receive Date: 20080331
  Receipt Date: 20080331
  Transmission Date: 20080703
  Serious: Yes (Life-Threatening, Hospitalization)
  Sender: FDA-Public Use
  Company Number: None

PATIENT
  Sex: Male
  Weight: 49.8957 kg

DRUGS (2)
  1. SINGULAIR [Suspect]
     Indication: ASTHMA
     Dosage: ONE TABLET BY MOUTH ONCE DAILY PER PHYSICIANS RECORDS
  2. SINGULAIR [Suspect]
     Indication: HYPERSENSITIVITY
     Dosage: ONE TABLET BY MOUTH ONCE DAILY PER PHYSICIANS RECORDS

REACTIONS (3)
  - DEPRESSION [None]
  - LACERATION [None]
  - SUICIDE ATTEMPT [None]
